FAERS Safety Report 9959940 (Version 1)
Quarter: 2014Q1

REPORT INFORMATION
  Report Type: Report from Study
  Country: US (occurrence: US)
  Receive Date: 20140305
  Receipt Date: 20140305
  Transmission Date: 20141002
  Serious: No
  Sender: FDA-Public Use
  Company Number: US-ABBVIE-13P-163-1103106-00

PATIENT
  Sex: Female

DRUGS (10)
  1. HUMIRA [Suspect]
     Indication: COLITIS ULCERATIVE
     Dates: start: 20130409
  2. L!ALDA [Concomitant]
     Indication: GASTROINTESTINAL DISORDER
  3. UNKNOWN COLON MEDICATION [Concomitant]
     Indication: GASTROINTESTINAL DISORDER
  4. UNKNOWN BLOOD PRESSURE MEDICATION [Concomitant]
     Indication: BLOOD PRESSURE
  5. UNKNOWN ARTHRITIS MEDICATION [Concomitant]
     Indication: OSTEOARTHRITIS
  6. UNKNOWN ARTHRITIS MEDICATION [Concomitant]
     Indication: OSTEOARTHRITIS
  7. LEVOTHYROXINE [Concomitant]
     Indication: THYROID DISORDER
  8. PREMPRO [Concomitant]
     Indication: HORMONE REPLACEMENT THERAPY
  9. IRON [Concomitant]
     Indication: PRODUCT USED FOR UNKNOWN INDICATION
  10. ZOCOR [Concomitant]
     Indication: BLOOD CHOLESTEROL

REACTIONS (1)
  - Toothache [Not Recovered/Not Resolved]
